FAERS Safety Report 7112029-3 (Version None)
Quarter: 2010Q4

REPORT INFORMATION
  Report Type: 
  Country: None (occurrence: None)
  Receive Date: 20101119
  Receipt Date: 20101116
  Transmission Date: 20110411
  Serious: Yes (Other)
  Sender: FDA-Public Use
  Company Number: US-PFIZER INC-2007030785

PATIENT
  Sex: Female

DRUGS (10)
  1. CHANTIX [Suspect]
     Dosage: 1 MG, 2X/DAY
     Dates: start: 20070111
  2. CHANTIX [Suspect]
     Dosage: 0.5 MG, 2X/DAY
  3. KLONOPIN [Concomitant]
  4. LEXAPRO [Concomitant]
     Indication: DEPRESSION
  5. VITAMINS [Concomitant]
  6. OPHTHALMOLOGICALS [Concomitant]
     Indication: MACULOPATHY
  7. CALTRATE + D [Concomitant]
  8. COENZYME Q10 [Concomitant]
  9. ACETYLSALICYLIC ACID SRT [Concomitant]
  10. VITAMIN B [Concomitant]

REACTIONS (11)
  - ABNORMAL DREAMS [None]
  - AGITATION [None]
  - CONSTIPATION [None]
  - DEPRESSION [None]
  - DRUG INEFFECTIVE [None]
  - FATIGUE [None]
  - INSOMNIA [None]
  - LAZINESS [None]
  - LETHARGY [None]
  - NAUSEA [None]
  - WEIGHT INCREASED [None]
